FAERS Safety Report 7293717-5 (Version None)
Quarter: 2011Q1

REPORT INFORMATION
  Report Type: 
  Country: None (occurrence: None)
  Receive Date: 20110203
  Receipt Date: 20110118
  Transmission Date: 20110831
  Serious: Yes (Death)
  Sender: FDA-Public Use
  Company Number: B0695059A

PATIENT
  Age: 65 Year
  Sex: Male

DRUGS (6)
  1. SIMVASTATIN (FORMULATION UNKNOWN) [Suspect]
     Dosage: ORAL
     Route: 048
  2. TRAZODONE (FORMULATION UNKNOWN) (GENERIC) (TRAZODONE) [Suspect]
     Dosage: ORAL
     Route: 048
  3. THYROXINE SODIUM (FORMULATION UNKNOWN) (GENERIC) (LEVOTHYROXINE SODIUM [Suspect]
     Dosage: ORAL
     Route: 048
  4. HYDROCHLOROTHIAIZIDE+OLMESART (FORMULATION UNKNOWN) (GENERIC) (HYDROCH [Suspect]
     Dosage: ORAL
     Route: 048
  5. LORAZEPAM (FORMULATION UNKNOWN) (GENERIC) (LORAZEPAM) [Suspect]
     Dosage: ORAL
     Route: 048
  6. RANITIDINE HYDROCHLORIDE [Suspect]
     Dosage: ORAL
     Route: 048

REACTIONS (2)
  - CARDIO-RESPIRATORY ARREST [None]
  - COMPLETED SUICIDE [None]
